FAERS Safety Report 21312635 (Version 2)
Quarter: 2022Q3

REPORT INFORMATION
  Report Type: Spontaneous
  Country: US (occurrence: US)
  Receive Date: 20220909
  Receipt Date: 20220914
  Transmission Date: 20221027
  Serious: No
  Sender: FDA-Public Use
  Company Number: US-PFIZER INC-202201142461

PATIENT
  Age: 56 Year
  Sex: Female
  Weight: 48.08 kg

DRUGS (3)
  1. PAXLOVID [Suspect]
     Active Substance: NIRMATRELVIR\RITONAVIR
     Indication: COVID-19 treatment
     Dosage: 3 DF, 2X/DAY (MORNING AND EVENING, THREE PILLS)
     Dates: start: 20220906
  2. BUPROPION [Concomitant]
     Active Substance: BUPROPION
     Indication: Menopause
     Dosage: 75 MG, 1X/DAY
  3. CLONAZEPAM [Concomitant]
     Active Substance: CLONAZEPAM
     Dosage: 0.25 MG

REACTIONS (3)
  - Dysgeusia [Unknown]
  - Insomnia [Unknown]
  - Agitation [Unknown]

NARRATIVE: CASE EVENT DATE: 20220901
